FAERS Safety Report 18024225 (Version 2)
Quarter: 2020Q3

REPORT INFORMATION
  Report Type: Spontaneous
  Country: GB (occurrence: GB)
  Receive Date: 20200714
  Receipt Date: 20200807
  Transmission Date: 20201103
  Serious: Yes (Other)
  Sender: FDA-Public Use
  Company Number: GB-ASCEND THERAPEUTICS US, LLC-2087376

PATIENT
  Age: 49 Year
  Sex: Female
  Weight: 65 kg

DRUGS (5)
  1. OESTROGEL (ESTRADIOL) (GEL), UNKNOWN [Concomitant]
  2. OESTRODOSE (ESTRADIOL) (0.06 PERCENT, GEL), 72651?80G 0.06% ESTRADIOL [Suspect]
     Active Substance: ESTRADIOL
     Route: 062
     Dates: start: 20200502
  3. ESTROGEL [Suspect]
     Active Substance: ESTRADIOL
     Indication: MENOPAUSE
     Route: 062
     Dates: start: 20200502
  4. ESTROGEL [Suspect]
     Active Substance: ESTRADIOL
  5. CITALOPRAM [Concomitant]
     Active Substance: CITALOPRAM HYDROBROMIDE

REACTIONS (9)
  - Product physical consistency issue [None]
  - Product dispensing error [None]
  - Product label issue [Unknown]
  - Drug ineffective [None]
  - Metrorrhagia [Not Recovered/Not Resolved]
  - Condition aggravated [Unknown]
  - Product prescribing error [None]
  - Hot flush [Not Recovered/Not Resolved]
  - Depressed mood [Not Recovered/Not Resolved]

NARRATIVE: CASE EVENT DATE: 20200504
